FAERS Safety Report 4330242-5 (Version None)
Quarter: 2004Q1

REPORT INFORMATION
  Report Type: 
  Country: None (occurrence: None)
  Receive Date: 20040329
  Receipt Date: 20040312
  Transmission Date: 20041129
  Serious: Yes (Death, Hospitalization)
  Sender: FDA-Public Use
  Company Number: 2004017000

PATIENT
  Age: 68 Year
  Sex: Male

DRUGS (13)
  1. VFEND [Suspect]
     Indication: ILL-DEFINED DISORDER
     Dosage: ORAL
     Route: 048
  2. CEFTRIAXONE [Suspect]
     Indication: ILL-DEFINED DISORDER
     Dosage: ORAL
     Route: 048
     Dates: start: 20040105
  3. BOSENTAN [Suspect]
     Indication: ILL-DEFINED DISORDER
     Dosage: ORAL
     Route: 048
     Dates: start: 20040108
  4. HYDROCORTISONE [Concomitant]
  5. ALPRZOLAM (ALPRAZOLAM) [Concomitant]
  6. GABAPENTIN [Concomitant]
  7. INSULIN [Concomitant]
  8. ACENOCOUMAROL (ACENOCOUMAROL) [Concomitant]
  9. HYDROXYCHLOROQUINE SULFATE [Concomitant]
  10. PRAVASTAIN (PRAVASTATIN) [Concomitant]
  11. ACETAMINOPHEN [Concomitant]
  12. DEXTROPROPOXYPHENE (DETROPROPOXYPHENE) [Concomitant]
  13. TAMSULOSIN (TAMSULOSIN) [Concomitant]

REACTIONS (5)
  - ALANINE AMINOTRANSFERASE INCREASED [None]
  - ASPARTATE AMINOTRANSFERASE INCREASED [None]
  - BLOOD ALKALINE PHOSPHATASE INCREASED [None]
  - CARDIAC FAILURE [None]
  - LIVER DISORDER [None]
